FAERS Safety Report 6054336-1 (Version None)
Quarter: 2009Q1

REPORT INFORMATION
  Report Type: 
  Country: None (occurrence: None)
  Receive Date: 20090127
  Receipt Date: 20090127
  Transmission Date: 20090719
  Serious: Yes (Hospitalization, Other)
  Sender: FDA-Public Use
  Company Number: US-PFIZER INC-2008151947

PATIENT
  Sex: Female

DRUGS (7)
  1. BEXTRA [Suspect]
     Indication: ARTHRALGIA
     Dates: start: 20020501, end: 20050101
  2. BEXTRA [Suspect]
     Indication: JOINT DISLOCATION
  3. PREMARIN [Concomitant]
     Dosage: UNK
  4. HYGROTON [Concomitant]
     Dosage: UNK
  5. POTASSIUM CHLORIDE [Concomitant]
     Dosage: UNK
  6. MULTI-VITAMINS [Concomitant]
     Dosage: UNK
  7. PERCOCET [Concomitant]
     Dosage: UNK

REACTIONS (10)
  - BENIGN NEOPLASM [None]
  - BREAST CANCER [None]
  - CARPAL TUNNEL SYNDROME [None]
  - CHONDRECTOMY [None]
  - INFECTION [None]
  - JOINT DISLOCATION [None]
  - KNEE ARTHROPLASTY [None]
  - SHOULDER OPERATION [None]
  - TOE OPERATION [None]
  - WEIGHT INCREASED [None]
